FAERS Safety Report 6619726-4 (Version None)
Quarter: 2010Q1

REPORT INFORMATION
  Report Type: 
  Country: None (occurrence: None)
  Receive Date: 20100309
  Receipt Date: 20100224
  Transmission Date: 20100710
  Serious: Yes (Other)
  Sender: FDA-Public Use
  Company Number: PHHY2010US11662

PATIENT
  Sex: Female

DRUGS (6)
  1. DIOVAN [Suspect]
     Dosage: 80 MG
  2. DIOVAN [Suspect]
     Dosage: 40 MG
  3. ASPIRIN [Concomitant]
  4. ZETIA [Concomitant]
  5. ONE-A-DAY VITAMIN [Concomitant]
  6. FISH OIL [Concomitant]

REACTIONS (5)
  - DRUG INEFFECTIVE [None]
  - ERUCTATION [None]
  - FLATULENCE [None]
  - GASTROENTERITIS VIRAL [None]
  - GASTROOESOPHAGEAL REFLUX DISEASE [None]
